FAERS Safety Report 14144848 (Version 1)
Quarter: 2017Q4

REPORT INFORMATION
  Report Type: Spontaneous
  Country: RU (occurrence: RU)
  Receive Date: 20171031
  Receipt Date: 20171031
  Transmission Date: 20180321
  Serious: Yes (Other)
  Sender: FDA-Public Use
  Company Number: RU-BAYER-2017-203735

PATIENT
  Age: 58 Year
  Sex: Female

DRUGS (5)
  1. MIRENA [Suspect]
     Active Substance: LEVONORGESTREL
     Indication: POLYMENORRHOEA
  2. ANGELIQ [Suspect]
     Active Substance: DROSPIRENONE\ESTRADIOL
     Indication: HOT FLUSH
     Dosage: 0.5 DF, UNK
     Route: 048
  3. FEMOSTON [Suspect]
     Active Substance: DYDROGESTERONE\ESTRADIOL
     Indication: POSTMENOPAUSE
     Dosage: 0.25 DF, UNK
     Route: 048
  4. ANGELIQ [Suspect]
     Active Substance: DROSPIRENONE\ESTRADIOL
     Indication: POSTMENOPAUSE
  5. MIRENA [Suspect]
     Active Substance: LEVONORGESTREL
     Indication: CONTRACEPTION
     Dosage: 20 MCG/24HR, CONT
     Route: 015
     Dates: start: 20060529

REACTIONS (5)
  - Invasive ductal breast carcinoma [None]
  - Incorrect dose administered [None]
  - Hot flush [None]
  - Uterine leiomyoma [None]
  - Uterine haemorrhage [None]

NARRATIVE: CASE EVENT DATE: 2017
